FAERS Safety Report 7166296-0 (Version None)
Quarter: 2010Q4

REPORT INFORMATION
  Report Type: 
  Country: None (occurrence: None)
  Receive Date: 20101216
  Receipt Date: 20101210
  Transmission Date: 20110411
  Serious: Yes (Hospitalization)
  Sender: FDA-Public Use
  Company Number: FR-PFIZER INC-2010168926

PATIENT
  Age: 23 Year
  Sex: Female

DRUGS (11)
  1. ZITHROMAX [Suspect]
     Indication: EYE INFECTION TOXOPLASMAL
     Dosage: 250 MG, 1X/DAY
     Route: 048
     Dates: start: 20101105, end: 20101118
  2. LEDERFOLINE [Suspect]
     Indication: EYE INFECTION TOXOPLASMAL
     Dosage: 50 MG, WEEKLY
     Route: 048
     Dates: start: 20101105, end: 20101115
  3. MALOCIDE [Suspect]
     Indication: EYE INFECTION TOXOPLASMAL
     Dosage: 50 MG, 1X/DAY
     Route: 048
     Dates: start: 20101105, end: 20101118
  4. DIAMOX [Suspect]
     Indication: EYE INFECTION TOXOPLASMAL
     Dosage: UNK
     Route: 048
     Dates: start: 20101105, end: 20101118
  5. ACTONEL [Suspect]
     Indication: EYE INFECTION TOXOPLASMAL
     Dosage: 35 MG, WEEKLY
     Route: 048
     Dates: start: 20101105, end: 20101118
  6. COSOPT [Suspect]
     Indication: EYE INFECTION TOXOPLASMAL
     Dosage: 2 GTT, 1X/DAY
     Route: 047
     Dates: start: 20101105, end: 20101118
  7. KALEORID [Suspect]
     Indication: EYE INFECTION TOXOPLASMAL
     Dosage: 1000 MG, 1X/DAY
     Route: 048
     Dates: start: 20101105, end: 20101118
  8. OROCAL VITAMIN D [Suspect]
     Indication: EYE INFECTION TOXOPLASMAL
     Dosage: 1 DF, 2X/DAY
     Route: 048
     Dates: start: 20101105, end: 20101118
  9. CORTANCYL [Concomitant]
     Dosage: 45 MG, 1X/DAY
     Route: 048
     Dates: start: 20101105, end: 20101124
  10. GALENIC /CYPROTERONE ACETATE/ETHINYLESTRADIOL [Concomitant]
     Indication: CONTRACEPTION
     Dosage: 1 DF, CYCLIC
     Route: 048
  11. GRANUDOXY [Concomitant]
     Indication: ACNE
     Dosage: UNK
     Route: 048
     Dates: start: 20100920

REACTIONS (1)
  - DYSKINESIA [None]
